FAERS Safety Report 18928214 (Version 1)
Quarter: 2021Q1

REPORT INFORMATION
  Report Type: Spontaneous
  Country: SA (occurrence: SA)
  Receive Date: 20210223
  Receipt Date: 20210223
  Transmission Date: 20210420
  Serious: Yes (Other)
  Sender: FDA-Public Use
  Company Number: SA-ABBVIE-21K-259-3785573-00

PATIENT
  Age: 35 Year
  Sex: Female

DRUGS (2)
  1. IMBRUVICA [Suspect]
     Active Substance: IBRUTINIB
     Route: 048
  2. IMBRUVICA [Suspect]
     Active Substance: IBRUTINIB
     Indication: CHRONIC LYMPHOCYTIC LEUKAEMIA
     Route: 048

REACTIONS (5)
  - Rash [Recovered/Resolved]
  - Musculoskeletal pain [Recovered/Resolved]
  - Polyarthritis [Unknown]
  - Incorrect dose administered [Unknown]
  - Off label use [Unknown]
